FAERS Safety Report 5126638-4 (Version None)
Quarter: 2006Q4

REPORT INFORMATION
  Report Type: 
  Country: None (occurrence: None)
  Receive Date: 20061012
  Receipt Date: 20061012
  Transmission Date: 20070319
  Serious: Yes (Other)
  Sender: FDA-Public Use
  Company Number: None

PATIENT
  Age: 53 Year
  Sex: Male
  Weight: 99.8 kg

DRUGS (1)
  1. AMOXICILLIN [Suspect]
     Indication: TOOTH DISORDER
     Dosage: 2G, 500MG Q 6 H, ORAL
     Route: 048
     Dates: start: 20060905, end: 20060912

REACTIONS (1)
  - RASH [None]
